FAERS Safety Report 14690840 (Version 1)
Quarter: 2018Q1

REPORT INFORMATION
  Report Type: Spontaneous
  Country: ES (occurrence: ES)
  Receive Date: 20180328
  Receipt Date: 20180328
  Transmission Date: 20180509
  Serious: Yes (Other)
  Sender: FDA-Public Use
  Company Number: ES-FRESENIUS KABI-FK201803790

PATIENT
  Age: 72 Year
  Sex: Male

DRUGS (4)
  1. COLISTIMETHATE (MANUFACTURER UNKNOWN) [Suspect]
     Active Substance: COLISTIMETHATE SODIUM
     Indication: TRACHEOBRONCHITIS
     Route: 055
  2. COLISTIMETHATE (MANUFACTURER UNKNOWN) [Suspect]
     Active Substance: COLISTIMETHATE SODIUM
     Indication: PSEUDOMONAS INFECTION
  3. MEROPENEM. [Concomitant]
     Active Substance: MEROPENEM
     Indication: PSEUDOMONAS INFECTION
  4. MEROPENEM. [Concomitant]
     Active Substance: MEROPENEM
     Indication: TRACHEOBRONCHITIS
     Route: 065

REACTIONS (3)
  - Pathogen resistance [Recovering/Resolving]
  - Pseudomonas infection [Recovering/Resolving]
  - Intentional product use issue [Recovering/Resolving]
